FAERS Safety Report 9912283 (Version 3)
Quarter: 2014Q4

REPORT INFORMATION
  Report Type: Report from Study
  Country: FR (occurrence: FR)
  Receive Date: 20140220
  Receipt Date: 20141014
  Transmission Date: 20150529
  Serious: Yes (Hospitalization, Disabling)
  Sender: FDA-Public Use
  Company Number: FR-BIOGENIDEC-2014BI015377

PATIENT
  Age: 58 Year
  Sex: Female

DRUGS (5)
  1. VITAMIN D [Concomitant]
     Active Substance: CHOLECALCIFEROL
  2. ENOXAPARINE [Concomitant]
     Active Substance: ENOXAPARIN
     Indication: THROMBOSIS PROPHYLAXIS
     Dosage: DOSE UNIT:4000 UNKNOWN
     Route: 058
     Dates: start: 20100711, end: 20101008
  3. CALCIUM [Concomitant]
     Active Substance: CALCIUM
  4. TYSABRI [Suspect]
     Active Substance: NATALIZUMAB
     Indication: MULTIPLE SCLEROSIS
     Route: 042
     Dates: start: 20071024
  5. ANTALGIC [Concomitant]

REACTIONS (1)
  - Lower limb fracture [Recovered/Resolved with Sequelae]

NARRATIVE: CASE EVENT DATE: 20100711
